FAERS Safety Report 4431090-8 (Version None)
Quarter: 2004Q3

REPORT INFORMATION
  Report Type: 
  Country: None (occurrence: None)
  Receive Date: 20040820
  Receipt Date: 20040820
  Transmission Date: 20050211
  Serious: Yes (Other)
  Sender: FDA-Public Use
  Company Number: None

PATIENT
  Sex: Female

DRUGS (1)
  1. DEMEROL [Suspect]
     Indication: BACK PAIN
     Dosage: 1/2 BID

REACTIONS (2)
  - ABDOMINAL DISCOMFORT [None]
  - MULTIPLE ALLERGIES [None]
